FAERS Safety Report 4263739-7 (Version None)
Quarter: 2004Q1

REPORT INFORMATION
  Report Type: 
  Country: None (occurrence: None)
  Receive Date: 20040102
  Receipt Date: 20031219
  Transmission Date: 20041129
  Serious: Yes (Hospitalization)
  Sender: FDA-Public Use
  Company Number: 200314836FR

PATIENT
  Age: 82 Year
  Sex: Female

DRUGS (6)
  1. RODOGYL TABLETS [Suspect]
     Dosage: PO
     Route: 048
     Dates: start: 20031103, end: 20031107
  2. OMEPRAZOLE [Concomitant]
  3. MOLSIDOMINE (CORVASAL) [Concomitant]
  4. GLICLAZIDE (DIAMICRON) [Concomitant]
  5. PULMICORT [Concomitant]
  6. SIMVASTATIN (LODALES) [Concomitant]

REACTIONS (2)
  - RASH MACULO-PAPULAR [None]
  - RHABDOMYOLYSIS [None]
